FAERS Safety Report 9924000 (Version 3)
Quarter: 2014Q1

REPORT INFORMATION
  Report Type: Report from Study
  Country: ZA (occurrence: ZA)
  Receive Date: 20140225
  Receipt Date: 20140311
  Transmission Date: 20141002
  Serious: Yes (Death, Hospitalization, Other)
  Sender: FDA-Public Use
  Company Number: ZA-GILEAD-2014-0095009

PATIENT
  Age: 36 Year
  Sex: Female
  Weight: 54.5 kg

DRUGS (1)
  1. EFAVIRENZ/EMTRICITABINE/TENOFOVIR DISOPROXIL FUMARATE [Suspect]
     Indication: HIV INFECTION
     Dosage: 1 UNK, UNK
     Route: 048
     Dates: start: 20131021

REACTIONS (1)
  - Foetal death [Fatal]
